FAERS Safety Report 9482664 (Version 2)
Quarter: 2013Q3

REPORT INFORMATION
  Report Type: Spontaneous
  Country: DE (occurrence: DE)
  Receive Date: 20130828
  Receipt Date: 20130828
  Transmission Date: 20140515
  Serious: Yes (Hospitalization, Other)
  Sender: FDA-Public Use
  Company Number: DE-TEVA-418165GER

PATIENT
  Age: 50 Year
  Sex: Female

DRUGS (2)
  1. RAMIPRIL-RATIOPHARM 5 MG TABLETTEN [Suspect]
     Indication: HYPERTENSION
     Dosage: 5 MILLIGRAM DAILY; 1-0-0, 5 MG DAILY
     Route: 048
     Dates: start: 20121229, end: 20130605
  2. BISOPROLOL-CT 5 MG TABLETTEN [Suspect]
     Indication: HYPERTENSION
     Dosage: 5 MILLIGRAM DAILY; 1-0-0, 5 MG DAILY
     Route: 048
     Dates: start: 20120714, end: 20120924

REACTIONS (3)
  - Sudden hearing loss [Recovering/Resolving]
  - Vestibular neuronitis [Recovering/Resolving]
  - Tinnitus [Not Recovered/Not Resolved]
